FAERS Safety Report 23671384 (Version 1)
Quarter: 2024Q1

REPORT INFORMATION
  Report Type: Spontaneous
  Country: RS (occurrence: RS)
  Receive Date: 20240326
  Receipt Date: 20240326
  Transmission Date: 20240410
  Serious: Yes (Other)
  Sender: FDA-Public Use
  Company Number: RS-AMGEN-SRBSP2024060118

PATIENT
  Age: 67 Year
  Sex: Female

DRUGS (4)
  1. VECTIBIX [Suspect]
     Active Substance: PANITUMUMAB
     Indication: Adenocarcinoma of colon
     Dosage: UNK, CYCLICAL (RECEIVED 5 CYCLES)
     Route: 065
     Dates: start: 20220922, end: 20230314
  2. FLUOROURACIL [Concomitant]
     Active Substance: FLUOROURACIL
     Indication: Adenocarcinoma of colon
     Dosage: UNK, CYCLICAL, (5 CYCLES)
     Route: 065
  3. LEUCOVORIN [Concomitant]
     Active Substance: LEUCOVORIN\LEUCOVORIN CALCIUM
     Indication: Adenocarcinoma of colon
     Dosage: UNK, CYCLICAL, (5 CYCLES)
     Route: 065
  4. OXALIPLATIN [Concomitant]
     Active Substance: OXALIPLATIN
     Indication: Adenocarcinoma of colon
     Dosage: UNK, CYCLICAL (5 CYCLES)
     Route: 065

REACTIONS (2)
  - Adenocarcinoma of colon [Unknown]
  - Skin toxicity [Unknown]

NARRATIVE: CASE EVENT DATE: 20230314
